FAERS Safety Report 18229011 (Version 1)
Quarter: 2020Q3

REPORT INFORMATION
  Report Type: Spontaneous
  Country: GB (occurrence: GB)
  Receive Date: 20200903
  Receipt Date: 20200903
  Transmission Date: 20201103
  Serious: Yes (Other)
  Sender: FDA-Public Use
  Company Number: GB-MYLANLABS-2020M1075305

PATIENT

DRUGS (1)
  1. WARFARIN [Suspect]
     Active Substance: WARFARIN
     Indication: PARADOXICAL EMBOLISM
     Dosage: UNK

REACTIONS (3)
  - Disease recurrence [Recovering/Resolving]
  - Haemorrhagic stroke [Recovering/Resolving]
  - Therapeutic product effect incomplete [Unknown]
